FAERS Safety Report 21211805 (Version 4)
Quarter: 2022Q3

REPORT INFORMATION
  Report Type: Spontaneous
  Country: US (occurrence: US)
  Receive Date: 20220815
  Receipt Date: 20220914
  Transmission Date: 20221026
  Serious: Yes (Other)
  Sender: FDA-Public Use
  Company Number: US-PFIZER INC-202201051777

PATIENT
  Age: 65 Year
  Sex: Female

DRUGS (7)
  1. IBRANCE [Suspect]
     Active Substance: PALBOCICLIB
     Indication: Breast cancer female
     Dosage: 100 MG, CYCLIC (100MG ORALLY DAILY FOR 21 DAYS, THEN 7 DAYS OFF)
     Route: 048
     Dates: start: 20220707
  2. IBRANCE [Suspect]
     Active Substance: PALBOCICLIB
     Indication: Pain
     Dosage: 100 MG, CYCLIC (100MG ORAL DAILY FOR 3 WEEKS ON AND 1 WEEK OFF)
     Route: 048
     Dates: start: 20220810, end: 20220817
  3. CALCIUM [Concomitant]
     Active Substance: CALCIUM
     Dosage: UNK
  4. COLACE [Concomitant]
     Active Substance: DOCUSATE SODIUM
     Dosage: UNK
  5. LIPITOR [Concomitant]
     Active Substance: ATORVASTATIN CALCIUM
     Dosage: UNK
  6. VITAMIN D3 [Concomitant]
     Active Substance: CHOLECALCIFEROL
     Dosage: UNK
  7. ROCEPHIN [Concomitant]
     Active Substance: CEFTRIAXONE SODIUM
     Dosage: UNK

REACTIONS (12)
  - Nephrolithiasis [Recovering/Resolving]
  - Diarrhoea [Recovering/Resolving]
  - Constipation [Recovering/Resolving]
  - Rhinorrhoea [Recovering/Resolving]
  - Cough [Recovering/Resolving]
  - Dysphonia [Recovering/Resolving]
  - Pharyngeal abscess [Recovering/Resolving]
  - Oropharyngeal pain [Recovering/Resolving]
  - Breath sounds abnormal [Recovering/Resolving]
  - Fatigue [Not Recovered/Not Resolved]
  - White blood cell count decreased [Recovering/Resolving]
  - Pain [Not Recovered/Not Resolved]

NARRATIVE: CASE EVENT DATE: 20220101
